FAERS Safety Report 8176894-3 (Version None)
Quarter: 2012Q1

REPORT INFORMATION
  Report Type: 
  Country: None (occurrence: None)
  Receive Date: 20120301
  Receipt Date: 20120228
  Transmission Date: 20120608
  Serious: No
  Sender: FDA-Public Use
  Company Number: US-PFIZER INC-2012053530

PATIENT
  Sex: Female
  Weight: 70.295 kg

DRUGS (1)
  1. CYTOMEL [Suspect]
     Indication: THYROIDITIS
     Dosage: UNK, 1X/DAY
     Route: 048
     Dates: start: 20070601

REACTIONS (2)
  - NERVOUSNESS [None]
  - IRRITABILITY [None]
